FAERS Safety Report 4282365-7 (Version None)
Quarter: 2004Q1

REPORT INFORMATION
  Report Type: 
  Country: None (occurrence: None)
  Receive Date: 20040114
  Receipt Date: 20031209
  Transmission Date: 20041129
  Serious: Yes (Other)
  Sender: FDA-Public Use
  Company Number: BIVUS030116

PATIENT
  Age: 58 Year
  Sex: Male
  Weight: 95 kg

DRUGS (3)
  1. ANGIOMAX [Suspect]
     Indication: ANGIOPLASTY
     Dosage: SEE IMAGE
     Dates: start: 20031209, end: 20031209
  2. ANGIOMAX [Suspect]
  3. PLAVIX [Concomitant]

REACTIONS (1)
  - CORONARY ARTERY THROMBOSIS [None]
